FAERS Safety Report 4483485-4 (Version None)
Quarter: 2004Q4

REPORT INFORMATION
  Report Type: 
  Country: None (occurrence: None)
  Receive Date: 20041020
  Receipt Date: 20041007
  Transmission Date: 20050328
  Serious: Yes (Other)
  Sender: FDA-Public Use
  Company Number: 2004075191

PATIENT
  Sex: Female

DRUGS (2)
  1. ZOLOFT [Suspect]
     Indication: DEPRESSION
     Dosage: 25 MG (25 MG, 1 IN 1 D)
     Dates: start: 20020101
  2. THYROID TAB [Concomitant]

REACTIONS (6)
  - ALOPECIA [None]
  - ANAPHYLACTIC SHOCK [None]
  - ARTHROPOD BITE [None]
  - HORMONE LEVEL ABNORMAL [None]
  - INFLUENZA [None]
  - LOSS OF CONSCIOUSNESS [None]
